FAERS Safety Report 22220283 (Version 1)
Quarter: 2023Q2

REPORT INFORMATION
  Report Type: Spontaneous
  Country: RS (occurrence: RS)
  Receive Date: 20230417
  Receipt Date: 20230417
  Transmission Date: 20230722
  Serious: Yes (Other)
  Sender: FDA-Public Use
  Company Number: RS-Merck Healthcare KGaA-9395202

PATIENT
  Age: 59 Year
  Sex: Female

DRUGS (6)
  1. ERBITUX [Suspect]
     Active Substance: CETUXIMAB
     Indication: Colorectal cancer metastatic
     Dosage: 400 MG, WEEKLY (1/W)
     Route: 065
     Dates: start: 202010
  2. ERBITUX [Suspect]
     Active Substance: CETUXIMAB
     Dosage: 250 MG, WEEKLY (1/W)
     Route: 065
     Dates: end: 202103
  3. FLUOROURACIL [Concomitant]
     Active Substance: FLUOROURACIL
     Indication: Colorectal cancer metastatic
     Dosage: 400 MG, WEEKLY (1/W)
     Route: 065
     Dates: start: 202010, end: 202103
  4. FLUOROURACIL [Concomitant]
     Active Substance: FLUOROURACIL
     Dosage: 2400 MG, WEEKLY (1/W)
     Route: 065
     Dates: start: 202010, end: 202103
  5. OXALIPLATIN [Concomitant]
     Active Substance: OXALIPLATIN
     Indication: Colorectal cancer metastatic
     Dosage: 85 MG, UNKNOWN
     Route: 065
     Dates: start: 202010, end: 202103
  6. LEUCOVORIN CALCIUM [Concomitant]
     Active Substance: LEUCOVORIN CALCIUM
     Indication: Colorectal cancer metastatic
     Dosage: 400 MG, WEEKLY (1/W)
     Route: 065
     Dates: start: 202010, end: 202103

REACTIONS (2)
  - Hepatectomy [Unknown]
  - Cancer surgery [Unknown]

NARRATIVE: CASE EVENT DATE: 20210601
